FAERS Safety Report 5885635-1 (Version None)
Quarter: 2008Q3

REPORT INFORMATION
  Report Type: 
  Country: None (occurrence: None)
  Receive Date: 20080912
  Receipt Date: 20080902
  Transmission Date: 20090109
  Serious: Yes (Life-Threatening, Hospitalization)
  Sender: FDA-Public Use
  Company Number: GXKR2008GB08411

PATIENT
  Age: 65 Year
  Sex: Male

DRUGS (12)
  1. FUROSEMIDE [Suspect]
     Indication: OEDEMA PERIPHERAL
     Dosage: 40 MG, QD, ORAL
     Route: 048
     Dates: start: 20080110, end: 20080603
  2. MICARDIS [Suspect]
     Indication: HYPERTENSION
     Dosage: 20 MG, QD, ORAL; 80 MG, QD, ORAL
     Route: 048
     Dates: start: 20071219, end: 20080214
  3. MICARDIS [Suspect]
     Indication: TYPE 2 DIABETES MELLITUS
     Dosage: 20 MG, QD, ORAL; 80 MG, QD, ORAL
     Route: 048
     Dates: start: 20071219, end: 20080214
  4. MICARDIS [Suspect]
     Indication: HYPERTENSION
     Dosage: 20 MG, QD, ORAL; 80 MG, QD, ORAL
     Route: 048
     Dates: start: 20070214, end: 20080528
  5. MICARDIS [Suspect]
     Indication: TYPE 2 DIABETES MELLITUS
     Dosage: 20 MG, QD, ORAL; 80 MG, QD, ORAL
     Route: 048
     Dates: start: 20070214, end: 20080528
  6. ACETYLSALICYLIC ACID SRT [Concomitant]
  7. BISOPROLOL FUMARATE [Concomitant]
  8. . [Concomitant]
  9. . [Concomitant]
  10. LANSOPRAZOLE [Concomitant]
  11. ROSUVASTATIN CALCIUM [Concomitant]
  12. . [Concomitant]

REACTIONS (1)
  - RENAL FAILURE [None]
